FAERS Safety Report 18971905 (Version 4)
Quarter: 2021Q1

REPORT INFORMATION
  Report Type: Other
  Country: CA (occurrence: CA)
  Receive Date: 20210305
  Receipt Date: 20210331
  Transmission Date: 20210420
  Serious: Yes (Other)
  Sender: FDA-Public Use
  Company Number: CA-ROCHE-2783025

PATIENT
  Age: 57 Year
  Sex: Female

DRUGS (14)
  1. OCREVUS [Suspect]
     Active Substance: OCRELIZUMAB
     Indication: RELAPSING-REMITTING MULTIPLE SCLEROSIS
     Dosage: 300 MG AT DAY 0 AND 14, THEN 600 MG EVERY 6 MONTH
     Route: 042
     Dates: start: 20180716
  2. OCREVUS [Suspect]
     Active Substance: OCRELIZUMAB
     Dosage: 300 MG AT DAY 0 AND 14, THEN 600 MG EVERY 6 MONTH
     Route: 042
  3. PRAMIPEXOLE. [Concomitant]
     Active Substance: PRAMIPEXOLE
  4. TIZANIDINE. [Concomitant]
     Active Substance: TIZANIDINE
     Dosage: HALF TABLET TWICE DAILY
  5. ESTROGEL [Concomitant]
     Active Substance: ESTRADIOL
  6. VOLTAREN EMULGEL [Concomitant]
     Active Substance: DICLOFENAC DIETHYLAMINE
  7. MUPIROCIN. [Concomitant]
     Active Substance: MUPIROCIN
     Dosage: 2% TWICE DAILY
  8. DULOXETINE. [Concomitant]
     Active Substance: DULOXETINE
     Dosage: CAPSULES ONCE DAILY
  9. CLONAZEPAM. [Concomitant]
     Active Substance: CLONAZEPAM
  10. ACETAMINOPHEN. [Concomitant]
     Active Substance: ACETAMINOPHEN
     Dosage: EVERY 4?6 HOURS
  11. METOPROLOL. [Concomitant]
     Active Substance: METOPROLOL
  12. BACLOFEN. [Concomitant]
     Active Substance: BACLOFEN
  13. PANTOPRAZOLE [Concomitant]
     Active Substance: PANTOPRAZOLE
  14. FAMPYRA [Concomitant]
     Active Substance: DALFAMPRIDINE

REACTIONS (1)
  - Cellulitis [Not Recovered/Not Resolved]

NARRATIVE: CASE EVENT DATE: 20210227
